FAERS Safety Report 8952585 (Version 1)
Quarter: 2012Q4

REPORT INFORMATION
  Report Type: 
  Country: FR (occurrence: FR)
  Receive Date: 20121205
  Receipt Date: 20121205
  Transmission Date: 20130627
  Serious: Yes (Other)
  Sender: FDA-Public Use
  Company Number: FR-BRISTOL-MYERS SQUIBB COMPANY-17160185

PATIENT
  Age: 72 Year
  Sex: Male

DRUGS (10)
  1. MANTADIX [Suspect]
     Indication: PARKINSON^S DISEASE
     Route: 048
     Dates: start: 201201
  2. SINEMET [Suspect]
     Indication: PARKINSON^S DISEASE
     Route: 048
     Dates: start: 1999
  3. AZILECT [Suspect]
     Indication: PARKINSON^S DISEASE
     Route: 048
     Dates: start: 20120529
  4. MODOPAR [Suspect]
     Indication: PARKINSON^S DISEASE
     Route: 048
     Dates: start: 201103
  5. NEUPRO [Suspect]
     Indication: PARKINSON^S DISEASE
     Route: 058
     Dates: start: 201202
  6. APOKINON [Suspect]
     Indication: PARKINSON^S DISEASE
     Dates: start: 201206
  7. FENOFIBRATE [Concomitant]
     Dates: start: 2002
  8. ATHYMIL [Concomitant]
     Dates: start: 2007
  9. XATRAL [Concomitant]
     Dates: start: 2009
  10. FORLAX [Concomitant]
     Dates: start: 201206

REACTIONS (2)
  - Malignant melanoma [Recovered/Resolved]
  - Skin cancer [Recovered/Resolved]
